FAERS Safety Report 7267855-7 (Version None)
Quarter: 2011Q1

REPORT INFORMATION
  Report Type: 
  Country: None (occurrence: None)
  Receive Date: 20110201
  Receipt Date: 20110124
  Transmission Date: 20110831
  Serious: Yes (Other)
  Sender: FDA-Public Use
  Company Number: B0696984A

PATIENT
  Sex: Female

DRUGS (4)
  1. SPIRIVA [Concomitant]
  2. SERETIDE DISKUS FORTE [Suspect]
     Indication: CHRONIC OBSTRUCTIVE PULMONARY DISEASE
     Dosage: 1UNIT TWICE PER DAY
     Route: 065
  3. ACETYLCYSTEINE [Concomitant]
  4. LEVOTHYROXINE SODIUM [Concomitant]

REACTIONS (4)
  - OCULAR HYPERAEMIA [None]
  - DRY MOUTH [None]
  - GLAUCOMA [None]
  - DRY EYE [None]
